FAERS Safety Report 17739995 (Version 2)
Quarter: 2024Q1

REPORT INFORMATION
  Report Type: Spontaneous
  Country: US (occurrence: US)
  Receive Date: 20200504
  Receipt Date: 20240221
  Transmission Date: 20240410
  Serious: Yes (Hospitalization, Other)
  Sender: FDA-Public Use
  Company Number: US-SA-2020SA107876

PATIENT
  Age: 65 Year
  Sex: Male

DRUGS (9)
  1. METHYLPREDNISOLONE [Suspect]
     Active Substance: METHYLPREDNISOLONE
     Indication: Immunosuppression
     Dosage: 250 MG
     Route: 065
  2. ANTI-THYMOCYTE GLOBULIN (RABBIT) NOS [Suspect]
     Active Substance: LAPINE T-LYMPHOCYTE IMMUNE GLOBULIN
     Indication: Immunosuppression
     Dosage: 2 MG/KG
     Route: 041
  3. PREDNISONE [Suspect]
     Active Substance: PREDNISONE
     Indication: Product used for unknown indication
     Dosage: 5 MG, QD
     Route: 065
  4. METOPROLOL [Suspect]
     Active Substance: METOPROLOL
     Indication: Blood pressure systolic increased
     Route: 065
  5. AMLODIPINE [Suspect]
     Active Substance: AMLODIPINE BESYLATE
     Indication: Blood pressure systolic increased
     Route: 065
  6. TACROLIMUS [Suspect]
     Active Substance: TACROLIMUS
     Indication: Product used for unknown indication
     Dosage: BEGINNING POD 3 TO A GOAL TROUGH OF 8-12 NG/ML
     Route: 065
  7. MYCOPHENOLATE MOFETIL [Suspect]
     Active Substance: MYCOPHENOLATE MOFETIL
     Indication: Product used for unknown indication
     Dosage: 1000 MG, BID
     Route: 065
  8. ASPIRIN [Concomitant]
     Active Substance: ASPIRIN
     Indication: Stent patency maintenance
     Dosage: 81 MG, QD
     Route: 065
  9. HUMAN RED BLOOD CELL [Concomitant]
     Active Substance: HUMAN RED BLOOD CELL
     Indication: Anaemia
     Dosage: 2 U
     Route: 065

REACTIONS (15)
  - Kidney rupture [Recovered/Resolved]
  - Renal haematoma [Recovered/Resolved]
  - Renal haemorrhage [Recovered/Resolved]
  - Renal cyst ruptured [Recovered/Resolved]
  - Glomerulosclerosis [Recovered/Resolved]
  - Flank pain [Recovered/Resolved]
  - Abdominal distension [Recovered/Resolved]
  - Renal tubular atrophy [Recovered/Resolved]
  - Lethargy [Recovered/Resolved]
  - Mental status changes [Recovered/Resolved]
  - Ureteric anastomosis complication [Recovered/Resolved]
  - Urine flow decreased [Recovered/Resolved]
  - Hypertension [Unknown]
  - Postoperative hypertension [Unknown]
  - Drug ineffective [Unknown]
